FAERS Safety Report 9648796 (Version 2)
Quarter: 2014Q2

REPORT INFORMATION
  Report Type: Report from Study
  Country: US (occurrence: US)
  Receive Date: 20131028
  Receipt Date: 20140408
  Transmission Date: 20141212
  Serious: Yes (Hospitalization)
  Sender: FDA-Public Use
  Company Number: US-TEVA-439859USA

PATIENT
  Age: 66 Year
  Sex: Male

DRUGS (1)
  1. COPAXONE [Suspect]
     Indication: MULTIPLE SCLEROSIS
     Dates: start: 20131011

REACTIONS (3)
  - Muscular weakness [Unknown]
  - Constipation [Unknown]
  - Change of bowel habit [Unknown]
